FAERS Safety Report 8767548 (Version 2)
Quarter: 2013Q1

REPORT INFORMATION
  Report Type: Other
  Country: FR (occurrence: FR)
  Receive Date: 20120904
  Receipt Date: 20130304
  Transmission Date: 20140127
  Serious: Yes (Other)
  Sender: FDA-Public Use
  Company Number: FR-ACTELION-A-CH2012-70703

PATIENT
  Age: 15 Year
  Sex: Female

DRUGS (1)
  1. ZAVESCA [Suspect]
     Indication: NIEMANN-PICK DISEASE
     Dosage: UNK MG, UNK
     Route: 048
     Dates: start: 200809

REACTIONS (3)
  - Crohn^s disease [Unknown]
  - Anal fistula [Unknown]
  - Cerebral atrophy [Unknown]
